FAERS Safety Report 25129715 (Version 1)
Quarter: 2025Q1

REPORT INFORMATION
  Report Type: Spontaneous
  Country: HR (occurrence: HR)
  Receive Date: 20250327
  Receipt Date: 20250327
  Transmission Date: 20250408
  Serious: Yes (Life-Threatening)
  Sender: NOVARTIS
  Company Number: None

PATIENT
  Age: 39 Year
  Sex: Female
  Weight: 82 kg

DRUGS (6)
  1. KISQALI [Suspect]
     Active Substance: RIBOCICLIB
     Indication: Breast cancer metastatic
     Route: 048
     Dates: start: 20240916, end: 20241112
  2. KISQALI [Suspect]
     Active Substance: RIBOCICLIB
     Indication: Metastases to lymph nodes
  3. KISQALI [Suspect]
     Active Substance: RIBOCICLIB
     Indication: Metastases to bone
  4. LETROZOLE [Concomitant]
     Active Substance: LETROZOLE
     Indication: Breast cancer metastatic
     Route: 048
     Dates: start: 20240916, end: 20241112
  5. LETROZOLE [Concomitant]
     Active Substance: LETROZOLE
     Indication: Metastases to lymph nodes
  6. LETROZOLE [Concomitant]
     Active Substance: LETROZOLE
     Indication: Metastases to bone

REACTIONS (20)
  - Mixed liver injury [Recovering/Resolving]
  - Musculoskeletal chest pain [Recovering/Resolving]
  - Ocular icterus [Recovering/Resolving]
  - Myalgia [Unknown]
  - Back pain [Unknown]
  - Malaise [Unknown]
  - Vomiting [Unknown]
  - Faeces pale [Unknown]
  - Chromaturia [Unknown]
  - Splenomegaly [Unknown]
  - Aspartate aminotransferase increased [Unknown]
  - Alanine aminotransferase increased [Unknown]
  - Blood alkaline phosphatase increased [Unknown]
  - Blood bilirubin increased [Unknown]
  - Aspartate aminotransferase increased [Unknown]
  - Alanine aminotransferase increased [Unknown]
  - Blood alkaline phosphatase increased [Unknown]
  - Gamma-glutamyltransferase increased [Unknown]
  - Blood lactate dehydrogenase increased [Unknown]
  - Blood bilirubin increased [Unknown]

NARRATIVE: CASE EVENT DATE: 20240101
